FAERS Safety Report 19228736 (Version 3)
Quarter: 2021Q2

REPORT INFORMATION
  Report Type: Report from Study
  Country: AU (occurrence: AU)
  Receive Date: 20210507
  Receipt Date: 20210615
  Transmission Date: 20210717
  Serious: Yes (Death, Hospitalization, Other)
  Sender: FDA-Public Use
  Company Number: AU-AMGEN-AUSNI2021068011

PATIENT
  Age: 59 Year
  Sex: Male

DRUGS (4)
  1. DARATUMUMAB [Concomitant]
     Active Substance: DARATUMUMAB
     Indication: PLASMA CELL MYELOMA
     Dosage: UNK
     Route: 065
     Dates: start: 20210323, end: 20210429
  2. DEXAMETHASONE. [Concomitant]
     Active Substance: DEXAMETHASONE
     Indication: PLASMA CELL MYELOMA
     Dosage: UNK
     Route: 065
  3. CARFILZOMIB [Suspect]
     Active Substance: CARFILZOMIB
     Indication: PLASMA CELL MYELOMA
     Dosage: 134 MILLIGRAM, QWK
     Route: 042
     Dates: start: 20210420
  4. CARFILZOMIB [Suspect]
     Active Substance: CARFILZOMIB
     Dosage: 134 MILLIGRAM, QWK
     Route: 042
     Dates: start: 20210427, end: 20210427

REACTIONS (3)
  - Septic shock [Fatal]
  - Cardiogenic shock [Fatal]
  - Disease progression [Unknown]

NARRATIVE: CASE EVENT DATE: 2021
